FAERS Safety Report 23674632 (Version 2)
Quarter: 2024Q2

REPORT INFORMATION
  Report Type: Spontaneous
  Country: US (occurrence: US)
  Receive Date: 20240326
  Receipt Date: 20240409
  Transmission Date: 20240716
  Serious: No
  Sender: FDA-Public Use
  Company Number: US-KARYOPHARM-2023KPT002108

PATIENT

DRUGS (14)
  1. XPOVIO [Suspect]
     Active Substance: SELINEXOR
     Indication: Plasma cell myeloma
     Dosage: 60 MG, WEEKLY
     Route: 048
     Dates: start: 20231018, end: 2024
  2. ACYCLOVIR [Concomitant]
     Active Substance: ACYCLOVIR
  3. METFORMIN HYDROCHLORIDE [Concomitant]
     Active Substance: METFORMIN HYDROCHLORIDE
  4. METOPROLOL SUCCINATE [Concomitant]
     Active Substance: METOPROLOL SUCCINATE
  5. LANTUS [Concomitant]
     Active Substance: INSULIN GLARGINE
  6. ROSUVASTATIN [Concomitant]
     Active Substance: ROSUVASTATIN
  7. PROAIR HFA [Concomitant]
     Active Substance: ALBUTEROL SULFATE
  8. FUROSEMIDE [Concomitant]
     Active Substance: FUROSEMIDE
  9. ATORVASTATIN [Concomitant]
     Active Substance: ATORVASTATIN
  10. GLIPIZIDE [Concomitant]
     Active Substance: GLIPIZIDE
  11. CYCLOPHOSPHAMIDE [Concomitant]
     Active Substance: CYCLOPHOSPHAMIDE
  12. FOLIC ACID [Concomitant]
     Active Substance: FOLIC ACID
  13. DEXAMETHASONE [Concomitant]
     Active Substance: DEXAMETHASONE
  14. ONDANSETRON [Concomitant]
     Active Substance: ONDANSETRON

REACTIONS (3)
  - Plasma cell myeloma [Unknown]
  - Diarrhoea [Not Recovered/Not Resolved]
  - Product dose omission issue [Unknown]

NARRATIVE: CASE EVENT DATE: 20231018
